FAERS Safety Report 6264647-2 (Version None)
Quarter: 2009Q3

REPORT INFORMATION
  Report Type: 
  Country: None (occurrence: None)
  Receive Date: 20090710
  Receipt Date: 20090518
  Transmission Date: 20100115
  Serious: Yes (Hospitalization)
  Sender: FDA-Public Use
  Company Number: PHHY2009GB19764

PATIENT
  Sex: Female
  Weight: 49.7 kg

DRUGS (4)
  1. ACLASTA [Suspect]
     Indication: OSTEOPOROSIS
     Dosage: 5 MG, UNK
     Dates: start: 20080222
  2. FENTANYL [Concomitant]
     Indication: PAIN
     Route: 061
  3. OMEPRAZOLE [Concomitant]
     Indication: OESOPHAGEAL CARCINOMA
     Dosage: 40 MG DAILY
     Route: 048
  4. CYCLIZINE [Concomitant]
     Indication: NAUSEA
     Dosage: 50 MG DAILY

REACTIONS (3)
  - DIARRHOEA [None]
  - DYSPNOEA [None]
  - RESPIRATORY FAILURE [None]
